FAERS Safety Report 8450138-7 (Version None)
Quarter: 2012Q2

REPORT INFORMATION
  Report Type: 
  Country: None (occurrence: None)
  Receive Date: 20120620
  Receipt Date: 20120613
  Transmission Date: 20120825
  Serious: Yes (Other)
  Sender: FDA-Public Use
  Company Number: US-AMGEN-USASP2012037074

PATIENT
  Age: 61 Year
  Sex: Female

DRUGS (10)
  1. CARVEDILOL [Concomitant]
     Dosage: UNK
  2. LASIX [Concomitant]
     Dosage: UNK
  3. SENSIPAR [Suspect]
     Dosage: UNK UNK, QD
  4. PROGRAF [Concomitant]
     Dosage: UNK
  5. OMEPRAZOLE [Concomitant]
     Dosage: UNK
  6. IRON [Concomitant]
     Dosage: UNK
  7. SENSIPAR [Suspect]
     Indication: HYPERPARATHYROIDISM SECONDARY
     Dosage: 30 MG, QD
     Dates: start: 20070301, end: 20101001
  8. PREDNISONE [Concomitant]
     Dosage: UNK
  9. COUMADIN [Concomitant]
     Dosage: UNK
  10. CELLCEPT [Concomitant]
     Dosage: UNK

REACTIONS (4)
  - CARDIAC FAILURE [None]
  - ATRIAL FIBRILLATION [None]
  - BLOOD PARATHYROID HORMONE INCREASED [None]
  - BLOOD CALCIUM INCREASED [None]
